FAERS Safety Report 7531577-5 (Version None)
Quarter: 2011Q2

REPORT INFORMATION
  Report Type: 
  Country: None (occurrence: None)
  Receive Date: 20110601
  Receipt Date: 20110518
  Transmission Date: 20111010
  Serious: Yes (Hospitalization, Other)
  Sender: FDA-Public Use
  Company Number: 20108006

PATIENT
  Age: 72 Year
  Sex: Female

DRUGS (1)
  1. BACLOFEN [Suspect]
     Indication: MUSCLE SPASTICITY
     Dosage: 120 MCG, DAILY, INTRATHECAL,
     Route: 037

REACTIONS (5)
  - RIB FRACTURE [None]
  - LUMBAR VERTEBRAL FRACTURE [None]
  - OSTEOPOROSIS [None]
  - SPINAL CORD INFARCTION [None]
  - COMPRESSION FRACTURE [None]
